FAERS Safety Report 7373857-2 (Version None)
Quarter: 2011Q1

REPORT INFORMATION
  Report Type: 
  Country: None (occurrence: None)
  Receive Date: 20110325
  Receipt Date: 20110317
  Transmission Date: 20110831
  Serious: Yes (Other)
  Sender: FDA-Public Use
  Company Number: US-PFIZER INC-2010173881

PATIENT
  Sex: Female

DRUGS (3)
  1. TOPROL-XL [Concomitant]
     Indication: BLOOD PRESSURE INCREASED
     Dosage: UNK
     Dates: start: 20070101
  2. CHANTIX [Suspect]
     Indication: SMOKING CESSATION THERAPY
     Dosage: UNK
     Dates: start: 20090201, end: 20090801
  3. SIMVASTATIN [Concomitant]
     Indication: BLOOD CHOLESTEROL INCREASED
     Dosage: UNK
     Dates: start: 20070101

REACTIONS (5)
  - DEPRESSION [None]
  - ABNORMAL DREAMS [None]
  - ANXIETY [None]
  - AMNESIA [None]
  - AGGRESSION [None]
